FAERS Safety Report 15232070 (Version 2)
Quarter: 2018Q4

REPORT INFORMATION
  Report Type: Spontaneous
  Country: US (occurrence: US)
  Receive Date: 20180802
  Receipt Date: 20181030
  Transmission Date: 20190204
  Serious: No
  Sender: FDA-Public Use
  Company Number: US-PFIZER INC-2018309360

PATIENT
  Age: 54 Year
  Sex: Female

DRUGS (5)
  1. VITAMIN C [Suspect]
     Active Substance: ASCORBIC ACID
     Dosage: UNK
  2. BACTRIM [Suspect]
     Active Substance: SULFAMETHOXAZOLE\TRIMETHOPRIM
     Dosage: UNK
  3. AMOXICILLIN. [Suspect]
     Active Substance: AMOXICILLIN
     Dosage: UNK
  4. CIPROFLOXACIN. [Suspect]
     Active Substance: CIPROFLOXACIN
     Dosage: UNK
  5. PROBENECID. [Suspect]
     Active Substance: PROBENECID
     Dosage: UNK

REACTIONS (1)
  - Drug hypersensitivity [Unknown]
